FAERS Safety Report 6540647-X (Version None)
Quarter: 2010Q1

REPORT INFORMATION
  Report Type: 
  Country: None (occurrence: None)
  Receive Date: 20100118
  Receipt Date: 20100111
  Transmission Date: 20100710
  Serious: Yes (Death)
  Sender: FDA-Public Use
  Company Number: US-ROCHE-674144

PATIENT
  Sex: Female

DRUGS (1)
  1. BONIVA [Suspect]
     Indication: BONE DISORDER
     Dosage: LAST DOSE RECEIVED IN JANUARY 2009
     Route: 065
     Dates: start: 20080201, end: 20090101

REACTIONS (2)
  - PULMONARY OEDEMA [None]
  - RENAL FAILURE [None]
